FAERS Safety Report 5375321-9 (Version None)
Quarter: 2007Q2

REPORT INFORMATION
  Report Type: 
  Country: None (occurrence: None)
  Receive Date: 20070629
  Receipt Date: 20070621
  Transmission Date: 20071010
  Serious: Yes (Hospitalization, Other)
  Sender: FDA-Public Use
  Company Number: US-ABBOTT-05P-163-0311108-00

PATIENT
  Sex: Female
  Weight: 44.946 kg

DRUGS (11)
  1. HUMIRA [Suspect]
     Indication: RHEUMATOID ARTHRITIS
     Route: 058
     Dates: start: 20031201
  2. METHOTREXATE SODIUM [Concomitant]
     Indication: RHEUMATOID ARTHRITIS
  3. MINOCYCLINE HCL [Concomitant]
     Indication: RHEUMATOID ARTHRITIS
     Route: 048
  4. OMEPRAZOLE [Concomitant]
     Indication: GASTROOESOPHAGEAL REFLUX DISEASE
     Route: 048
  5. OXYCODONE HCL [Concomitant]
     Indication: ARTHRALGIA
     Route: 048
  6. OXYCODONE HCL [Concomitant]
     Dosage: 5 MG 3-4 TABLETS
     Route: 048
  7. MACROGOL [Concomitant]
     Indication: LAXATIVE SUPPORTIVE CARE
     Route: 048
  8. LORATADINE [Concomitant]
     Indication: SINUS DISORDER
  9. LORATADINE [Concomitant]
     Indication: POSTNASAL DRIP
  10. NASAL SPRAY [Concomitant]
     Indication: SINUS DISORDER
  11. OXYBUTYNIN [Concomitant]
     Indication: URINARY INCONTINENCE

REACTIONS (9)
  - ADENOCARCINOMA [None]
  - ADENOSQUAMOUS CELL LUNG CANCER [None]
  - AXILLARY MASS [None]
  - HYPERPLASIA [None]
  - LUNG NEOPLASM [None]
  - LYMPHADENOPATHY [None]
  - NEUROENDOCRINE CARCINOMA [None]
  - PSORIASIS [None]
  - RASH [None]
